FAERS Safety Report 9393116 (Version 1)
Quarter: 2013Q3

REPORT INFORMATION
  Report Type: Spontaneous
  Country: US (occurrence: US)
  Receive Date: 20130710
  Receipt Date: 20130710
  Transmission Date: 20140515
  Serious: No
  Sender: FDA-Public Use
  Company Number: US-JNJFOC-20130619220

PATIENT
  Age: 49 Year
  Sex: Female
  Weight: 71.67 kg

DRUGS (4)
  1. FENTANYL TRANSDERMAL SYSTEM [Suspect]
     Indication: PAIN
     Route: 062
     Dates: start: 20130612
  2. HYDROMORPHONE [Concomitant]
     Indication: PAIN
     Route: 048
     Dates: start: 2012
  3. LISINOPRIL [Concomitant]
     Indication: BLOOD PRESSURE
     Route: 065
  4. LOVENOX [Concomitant]
     Indication: THROMBOSIS
     Route: 065
     Dates: start: 2011

REACTIONS (7)
  - Back pain [Not Recovered/Not Resolved]
  - Pain in extremity [Not Recovered/Not Resolved]
  - Pain [Not Recovered/Not Resolved]
  - Product quality issue [Unknown]
  - Wrong technique in drug usage process [Not Recovered/Not Resolved]
  - Drug prescribing error [Unknown]
  - Wrong technique in drug usage process [Not Recovered/Not Resolved]
